FAERS Safety Report 13347294 (Version 1)
Quarter: 2017Q1

REPORT INFORMATION
  Report Type: Spontaneous
  Country: CN (occurrence: CN)
  Receive Date: 20170317
  Receipt Date: 20170317
  Transmission Date: 20170428
  Serious: Yes (Death)
  Sender: FDA-Public Use
  Company Number: CN-UNITED THERAPEUTICS-UNT-2017-003484

PATIENT
  Age: 42 Year
  Sex: Male
  Weight: 79 kg

DRUGS (1)
  1. REMODULIN [Suspect]
     Active Substance: TREPROSTINIL
     Indication: PRODUCT USED FOR UNKNOWN INDICATION
     Dosage: 0.007 ?G/KG, CONTINUING
     Route: 041
     Dates: start: 20170213, end: 20170309

REACTIONS (2)
  - Complications of transplanted heart [Fatal]
  - Cardiac failure [Fatal]

NARRATIVE: CASE EVENT DATE: 201702
